FAERS Safety Report 12819461 (Version 1)
Quarter: 2016Q4

REPORT INFORMATION
  Report Type: Spontaneous
  Country: US (occurrence: US)
  Receive Date: 20161006
  Receipt Date: 20161006
  Transmission Date: 20170207
  Serious: Yes (Other)
  Sender: FDA-Public Use
  Company Number: US-BEH-2016073817

PATIENT
  Sex: Female
  Weight: 66.67 kg

DRUGS (27)
  1. ACETAMINOPHEN + COD. PHOSP. [Concomitant]
     Active Substance: ACETAMINOPHEN\CODEINE PHOSPHATE
  2. SODIUM CHLORIDE + DEXTROSE [Concomitant]
  3. CYMBALTA [Concomitant]
     Active Substance: DULOXETINE HYDROCHLORIDE
  4. ROCALTROL [Concomitant]
     Active Substance: CALCITRIOL
  5. HEPARIN [Concomitant]
     Active Substance: HEPARIN SODIUM
  6. EPIPEN [Concomitant]
     Active Substance: EPINEPHRINE
  7. SUCRALFATE KENT [Concomitant]
  8. OSTEO BI-FLEX                      /01431201/ [Concomitant]
  9. ZOFRAN [Concomitant]
     Active Substance: ONDANSETRON HYDROCHLORIDE
  10. HIZENTRA [Suspect]
     Active Substance: HUMAN IMMUNOGLOBULIN G
     Indication: IMMUNODEFICIENCY COMMON VARIABLE
     Dosage: 10 G, UNK
     Route: 058
     Dates: start: 20120705
  11. LISINOPRIL. [Concomitant]
     Active Substance: LISINOPRIL
  12. MAGNESIUM OXIDE HEAVY [Concomitant]
     Active Substance: MAGNESIUM OXIDE
  13. VITAMINS WITH MINERALS [Concomitant]
     Active Substance: MINERALS\VITAMINS
  14. ZITHROMAX [Concomitant]
     Active Substance: AZITHROMYCIN DIHYDRATE
  15. BENADRYL ALLERGY [Concomitant]
     Active Substance: DIPHENHYDRAMINE HYDROCHLORIDE
  16. LASIX [Concomitant]
     Active Substance: FUROSEMIDE
  17. NORCO [Concomitant]
     Active Substance: ACETAMINOPHEN\HYDROCODONE BITARTRATE
  18. POTASSIUM                          /00031402/ [Concomitant]
     Active Substance: POTASSIUM
  19. DIPHENHYDRAMINE                    /00000402/ [Concomitant]
     Active Substance: DIPHENHYDRAMINE
  20. FERROUS FUMARATE 324 [Concomitant]
  21. METOPROLOL. [Concomitant]
     Active Substance: METOPROLOL
  22. COUMADIN [Concomitant]
     Active Substance: WARFARIN SODIUM
  23. OXYGEN. [Concomitant]
     Active Substance: OXYGEN
  24. DIAZEPAM. [Concomitant]
     Active Substance: DIAZEPAM
  25. METHADOSE [Concomitant]
     Active Substance: METHADONE HYDROCHLORIDE
  26. TOPAMAX [Concomitant]
     Active Substance: TOPIRAMATE
  27. ENULOSE [Concomitant]
     Active Substance: LACTULOSE

REACTIONS (7)
  - Renal failure [Unknown]
  - Fatigue [Unknown]
  - Thrombosis [Unknown]
  - Cerebrovascular accident [Unknown]
  - Pollakiuria [Unknown]
  - Blood viscosity increased [Unknown]
  - Feeling hot [Unknown]
